FAERS Safety Report 12305693 (Version 1)
Quarter: 2016Q2

REPORT INFORMATION
  Report Type: Other
  Country: GB (occurrence: GB)
  Receive Date: 20160426
  Receipt Date: 20160426
  Transmission Date: 20160815
  Serious: Yes (Other)
  Sender: FDA-Public Use
  Company Number: GB-CIPLA LTD.-2016GB04065

PATIENT

DRUGS (5)
  1. WARFARIN [Suspect]
     Active Substance: WARFARIN
     Dosage: 8 MG ON 2 DAYS/WEEK
     Route: 065
  2. CARVEDILOL. [Concomitant]
     Active Substance: CARVEDILOL
     Dosage: UNK
     Route: 065
  3. IRON [Concomitant]
     Active Substance: IRON
     Dosage: UNK
     Route: 065
  4. PARACETAMOL [Concomitant]
     Active Substance: ACETAMINOPHEN
     Indication: PAIN
     Dosage: UNK
     Route: 065
  5. WARFARIN [Suspect]
     Active Substance: WARFARIN
     Indication: INTRACRANIAL VENOUS SINUS THROMBOSIS
     Dosage: 7 MG ON 5 DAYS/WEEK
     Route: 065
     Dates: start: 201308

REACTIONS (6)
  - Blue toe syndrome [Recovering/Resolving]
  - Pruritus [Recovering/Resolving]
  - Pain in extremity [Recovering/Resolving]
  - Dizziness [Recovering/Resolving]
  - Rash papular [Recovering/Resolving]
  - Anxiety [Recovering/Resolving]

NARRATIVE: CASE EVENT DATE: 2015
